FAERS Safety Report 5295278-9 (Version None)
Quarter: 2007Q2

REPORT INFORMATION
  Report Type: 
  Country: None (occurrence: None)
  Receive Date: 20070412
  Receipt Date: 20070403
  Transmission Date: 20071010
  Serious: Yes (Other)
  Sender: FDA-Public Use
  Company Number: US-PFIZER INC-2007026854

PATIENT

DRUGS (1)
  1. LYRICA [Suspect]

REACTIONS (1)
  - DEAFNESS [None]
